FAERS Safety Report 6621734-4 (Version None)
Quarter: 2010Q1

REPORT INFORMATION
  Report Type: 
  Country: None (occurrence: None)
  Receive Date: 20100309
  Receipt Date: 20100226
  Transmission Date: 20100710
  Serious: Yes (Life-Threatening)
  Sender: FDA-Public Use
  Company Number: NL-AMGEN-US393458

PATIENT
  Age: 57 Year
  Sex: Female

DRUGS (9)
  1. ENBREL [Suspect]
     Indication: DRUG USE FOR UNKNOWN INDICATION
     Dates: start: 20100126, end: 20100201
  2. ENBREL [Suspect]
     Dates: start: 20100216
  3. RASILEZ [Concomitant]
     Dosage: 300 MG
  4. FERO-GRAD [Concomitant]
     Dosage: ONE TIME ADMINSTRATION
  5. COZAAR [Concomitant]
     Dosage: 100 MG
  6. PREDNISONE [Concomitant]
     Dosage: 7.5 MG
  7. LOSEC [Concomitant]
     Dosage: 40 MG
  8. SOTALOL [Concomitant]
     Dosage: 2X 40 MG
  9. HYDROCHLOROTHIAZIDE [Concomitant]
     Dosage: 12.5 MG

REACTIONS (5)
  - HYPERTENSION [None]
  - NAUSEA [None]
  - PALPITATIONS [None]
  - VISION BLURRED [None]
  - VISUAL ACUITY REDUCED [None]
